FAERS Safety Report 10268306 (Version 2)
Quarter: 2014Q3

REPORT INFORMATION
  Report Type: Report from Study
  Country: JP (occurrence: JP)
  Receive Date: 20140630
  Receipt Date: 20140710
  Transmission Date: 20150326
  Serious: Yes (Life-Threatening, Hospitalization, Other)
  Sender: FDA-Public Use
  Company Number: JP-UCBSA-2014003180

PATIENT
  Age: 65 Year
  Sex: Female
  Weight: 53.9 kg

DRUGS (2)
  1. *CARBAMAZEPINE [Suspect]
     Active Substance: CARBAMAZEPINE
     Indication: EPILEPSY
     Dosage: 100/200 MG, 2X/DAY (BID)
     Route: 048
     Dates: start: 20131118, end: 20140110
  2. *CARBAMAZEPINE [Suspect]
     Active Substance: CARBAMAZEPINE
     Dosage: 200/400
     Route: 048
     Dates: start: 20140110, end: 20140622

REACTIONS (3)
  - Altered state of consciousness [None]
  - Aplastic anaemia [Not Recovered/Not Resolved]
  - Constipation [None]

NARRATIVE: CASE EVENT DATE: 20140622
